FAERS Safety Report 5808192-4 (Version None)
Quarter: 2008Q3

REPORT INFORMATION
  Report Type: 
  Country: None (occurrence: None)
  Receive Date: 20080709
  Receipt Date: 20080624
  Transmission Date: 20090109
  Serious: Yes (Hospitalization)
  Sender: FDA-Public Use
  Company Number: B0527598A

PATIENT
  Age: 21 Year
  Sex: Male

DRUGS (2)
  1. LAMOTRIGINE [Suspect]
     Indication: BIPOLAR DISORDER
     Dosage: 200 MG / PER DAY /
  2. ARIPIPRAZOLE [Concomitant]

REACTIONS (3)
  - ACUTE HEPATIC FAILURE [None]
  - DELUSION [None]
  - HEPATOTOXICITY [None]
